FAERS Safety Report 9013477 (Version 1)
Quarter: 2012Q4

REPORT INFORMATION
  Report Type: Spontaneous
  Country: GB (occurrence: None)
  Receive Date: 20121231
  Receipt Date: 20121231
  Transmission Date: 20130627
  Serious: Yes (Other)
  Sender: FDA-Public Use
  Company Number: AUR-APL-2012-05542

PATIENT
  Age: 37 Year
  Sex: Male
  Weight: 76.2 kg

DRUGS (2)
  1. MIRTAZAPINE (MIRTAZAPINE) [Suspect]
     Indication: ANXIETY
     Route: 048
     Dates: start: 20121206
  2. SERTRALINE (SERTRALINE) (SERTRALINE) [Concomitant]

REACTIONS (2)
  - Anger [None]
  - Irritability [None]
